FAERS Safety Report 6123639-4 (Version None)
Quarter: 2009Q1

REPORT INFORMATION
  Report Type: 
  Country: None (occurrence: None)
  Receive Date: 20090317
  Receipt Date: 20090317
  Transmission Date: 20090719
  Serious: Yes (Other)
  Sender: FDA-Public Use
  Company Number: None

PATIENT
  Sex: Male

DRUGS (1)
  1. RISPERIDONE [Suspect]
     Dosage: 1MG BID

REACTIONS (3)
  - AGGRESSION [None]
  - PRODUCT QUALITY ISSUE [None]
  - VIOLENCE-RELATED SYMPTOM [None]
